FAERS Safety Report 12553364 (Version 3)
Quarter: 2017Q2

REPORT INFORMATION
  Report Type: Report from Study
  Country: US (occurrence: US)
  Receive Date: 20160713
  Receipt Date: 20170530
  Transmission Date: 20170830
  Serious: Yes (Hospitalization, Other)
  Sender: FDA-Public Use
  Company Number: US-BAYER-2016-098015

PATIENT
  Age: 68 Year
  Sex: Female

DRUGS (5)
  1. STIVARGA [Suspect]
     Active Substance: REGORAFENIB
     Indication: COLON CANCER
     Dosage: DAILY DOSE 120 MG
     Route: 048
  2. STIVARGA [Suspect]
     Active Substance: REGORAFENIB
     Indication: COLON CANCER
     Dosage: 80 MG DAILY WITH FOOD (LOW-FAT BREAKFAST) FOR 21 DAYS ON AND 7 DAYS OFF AND REPEAT CYCLE AS DIRECTED
     Route: 048
     Dates: start: 201702, end: 20170510
  3. STIVARGA [Suspect]
     Active Substance: REGORAFENIB
     Indication: COLON CANCER
     Dosage: 160 MG, QD FOR 21 ON AND 7 OFF
     Route: 048
     Dates: start: 2016
  4. STIVARGA [Suspect]
     Active Substance: REGORAFENIB
     Indication: COLON CANCER
     Dosage: 160 MG, QD
     Route: 048
     Dates: start: 20160502
  5. STIVARGA [Suspect]
     Active Substance: REGORAFENIB
     Indication: COLON CANCER
     Dosage: 120 MG, QD
     Route: 048

REACTIONS (10)
  - Neuropathy peripheral [None]
  - Diarrhoea [Recovered/Resolved]
  - Oral mucosal blistering [None]
  - Pain in extremity [None]
  - Blister [Unknown]
  - Oral pain [None]
  - Dysphonia [None]
  - Lower limb fracture [None]
  - Dysphagia [None]
  - Blister [None]
